FAERS Safety Report 4885884-5 (Version None)
Quarter: 2006Q1

REPORT INFORMATION
  Report Type: 
  Country: None (occurrence: None)
  Receive Date: 20060117
  Receipt Date: 20060104
  Transmission Date: 20060701
  Serious: Yes (Hospitalization, Other)
  Sender: FDA-Public Use
  Company Number: 2006AL000050

PATIENT
  Age: 19 Year
  Sex: Female

DRUGS (1)
  1. DOXAZOSIN MESYLATE TABLETS, 8 MG (BASE) (PUREPAC) (DOXAZOSIN MESYLATE [Suspect]
     Dosage: 60 MG; PO
     Route: 048

REACTIONS (5)
  - HYPOTENSION [None]
  - OVERDOSE [None]
  - SINUS TACHYCARDIA [None]
  - SOMNOLENCE [None]
  - SUICIDE ATTEMPT [None]
